FAERS Safety Report 4848724-6 (Version None)
Quarter: 2005Q4

REPORT INFORMATION
  Report Type: 
  Country: None (occurrence: None)
  Receive Date: 20051206
  Receipt Date: 20051122
  Transmission Date: 20060501
  Serious: Yes (Death)
  Sender: FDA-Public Use
  Company Number: FR200511002615

PATIENT
  Age: 33 Year
  Sex: Female

DRUGS (6)
  1. ZYPREXA [Suspect]
     Indication: PSYCHOTIC DISORDER
     Dosage: 10 MG, DAILY (1/D), ORAL
     Route: 048
     Dates: start: 20051121
  2. TEGRETOL [Concomitant]
  3. GARDENAL (PHENOBARBIAL) [Concomitant]
  4. RIVOTRIL   /NOR/ (CLONAZEPAM) [Concomitant]
  5. LOXAPINE SUCCINATE [Concomitant]
  6. LORAZEPAM [Concomitant]

REACTIONS (2)
  - CONVULSION [None]
  - TONGUE BITING [None]
